FAERS Safety Report 8464593-X (Version None)
Quarter: 2012Q2

REPORT INFORMATION
  Report Type: 
  Country: None (occurrence: None)
  Receive Date: 20120626
  Receipt Date: 20120621
  Transmission Date: 20120825
  Serious: No
  Sender: FDA-Public Use
  Company Number: US-TEVA-344943USA

PATIENT
  Sex: Female

DRUGS (1)
  1. COPAXONE [Suspect]
     Indication: MULTIPLE SCLEROSIS

REACTIONS (5)
  - SKIN REACTION [None]
  - FINGER DEFORMITY [None]
  - MUSCULAR WEAKNESS [None]
  - HAND DEFORMITY [None]
  - FATIGUE [None]
